FAERS Safety Report 4526072-1 (Version None)
Quarter: 2004Q4

REPORT INFORMATION
  Report Type: 
  Country: None (occurrence: None)
  Receive Date: 20041207
  Receipt Date: 20041112
  Transmission Date: 20050328
  Serious: Yes (Death, Hospitalization, Other)
  Sender: FDA-Public Use
  Company Number: WAES 0407USA00060

PATIENT
  Age: 74 Year
  Sex: Female
  Weight: 75.7507 kg

DRUGS (13)
  1. DEXAMETHASONE [Suspect]
     Dosage: SEE IMAGE
     Route: 048
     Dates: start: 20031120
  2. DEXAMETHASONE [Suspect]
     Dosage: SEE IMAGE
     Route: 048
     Dates: start: 20040614
  3. INJ EDOTECARIN [Suspect]
     Indication: GLIOBLASTOMA MULTIFORME
     Dosage: 23.1 MG/Q3W/IV
     Route: 042
     Dates: start: 20040614
  4. MULTIVITAMIN [Concomitant]
  5. ATENOLOL [Concomitant]
  6. ATORVASTATIN CALCIUM [Concomitant]
  7. CHLOROTHIAZIDE [Concomitant]
  8. FLUCONAZOLE [Concomitant]
  9. HYDROCODONE BITARTRATE [Concomitant]
  10. LEVETIRACETAM [Concomitant]
  11. NYSTATIN [Concomitant]
  12. POTASSIUM CHLORIDE [Concomitant]
  13. SULFAMETHOXAZOLE (+) TRIMETHOPRI [Concomitant]

REACTIONS (15)
  - ANOREXIA [None]
  - ASTHENIA [None]
  - ATELECTASIS [None]
  - COGNITIVE DETERIORATION [None]
  - CONFUSIONAL STATE [None]
  - FATIGUE [None]
  - GENERAL PHYSICAL HEALTH DETERIORATION [None]
  - HYPERGLYCAEMIA [None]
  - HYPOKALAEMIA [None]
  - HYPONATRAEMIA [None]
  - LETHARGY [None]
  - LUNG INFILTRATION [None]
  - MARKEDLY REDUCED DIETARY INTAKE [None]
  - NEUTROPENIA [None]
  - THROMBOCYTOPENIA [None]
